FAERS Safety Report 6127839-9 (Version None)
Quarter: 2009Q1

REPORT INFORMATION
  Report Type: 
  Country: None (occurrence: None)
  Receive Date: 20090320
  Receipt Date: 20090320
  Transmission Date: 20090719
  Serious: Yes (Other)
  Sender: FDA-Public Use
  Company Number: None

PATIENT
  Age: 85 Year
  Sex: Male
  Weight: 81.6475 kg

DRUGS (1)
  1. FLOMAX [Suspect]
     Indication: POLLAKIURIA
     Dosage: 0.4 MG 1 CAP DAILY
     Dates: start: 20071101, end: 20080821

REACTIONS (2)
  - BREAST SWELLING [None]
  - BREAST TENDERNESS [None]
